FAERS Safety Report 16048567 (Version 1)
Quarter: 2019Q1

REPORT INFORMATION
  Report Type: Spontaneous
  Country: AU (occurrence: AU)
  Receive Date: 20190307
  Receipt Date: 20190307
  Transmission Date: 20190418
  Serious: Yes (Other)
  Sender: FDA-Public Use
  Company Number: AU-BAYER-2019-035176

PATIENT
  Age: 76 Year
  Sex: Female

DRUGS (1)
  1. CLIMARA [Suspect]
     Active Substance: ESTRADIOL
     Indication: HORMONE LEVEL ABNORMAL
     Route: 062

REACTIONS (4)
  - Wrong technique in product usage process [None]
  - Suicidal ideation [Recovered/Resolved]
  - Product prescribing issue [None]
  - Product availability issue [None]

NARRATIVE: CASE EVENT DATE: 201902
